FAERS Safety Report 9523473 (Version 1)
Quarter: 2013Q3

REPORT INFORMATION
  Report Type: Spontaneous
  Country: IT (occurrence: IT)
  Receive Date: 20130913
  Receipt Date: 20130913
  Transmission Date: 20140515
  Serious: Yes (Other)
  Sender: FDA-Public Use
  Company Number: PHHY2013IT098023

PATIENT
  Sex: Male

DRUGS (4)
  1. RIBAVIRIN [Suspect]
     Indication: CHRONIC HEPATITIS C
     Dosage: 1200 MG, QD
     Dates: start: 20130327, end: 20130524
  2. PEGASYS [Suspect]
     Indication: CHRONIC HEPATITIS C
     Dosage: 180 UG, QW
     Dates: start: 20130327, end: 20130524
  3. VICTRELIS [Suspect]
     Indication: CHRONIC HEPATITIS C
     Dosage: 2400 MG, QD
     Dates: start: 20130508, end: 20130524
  4. EPREX [Concomitant]
     Dosage: UNK UKN, UNK
     Dates: start: 20130508, end: 20130524

REACTIONS (1)
  - Facial nerve disorder [Recovering/Resolving]
